FAERS Safety Report 17999375 (Version 3)
Quarter: 2022Q1

REPORT INFORMATION
  Report Type: Spontaneous
  Country: PL (occurrence: PL)
  Receive Date: 20200709
  Receipt Date: 20220329
  Transmission Date: 20220423
  Serious: Yes (Other)
  Sender: FDA-Public Use
  Company Number: None

PATIENT
  Age: 30 Year
  Sex: Female

DRUGS (10)
  1. AZITHROMYCIN [Suspect]
     Active Substance: AZITHROMYCIN
     Indication: COVID-19
     Dosage: 500 MG, QD
     Route: 065
     Dates: start: 20200417, end: 20200419
  2. AZITHROMYCIN [Suspect]
     Active Substance: AZITHROMYCIN
     Indication: COVID-19 pneumonia
     Dosage: 250 MG, QD
     Route: 065
     Dates: start: 20200420, end: 20200424
  3. TOCILIZUMAB [Suspect]
     Active Substance: TOCILIZUMAB
     Indication: COVID-19
     Dosage: 480 MG, UNKNOWN, TWO SEPARATED DOSES 8 MG/KG EVERY 12-24 H
     Route: 042
     Dates: start: 20200422, end: 20200423
  4. TOCILIZUMAB [Suspect]
     Active Substance: TOCILIZUMAB
     Indication: COVID-19 pneumonia
  5. CHLOROQUINE [Suspect]
     Active Substance: CHLOROQUINE
     Indication: COVID-19
     Dosage: 500 MG, BID
     Route: 065
     Dates: start: 20200417, end: 20200421
  6. CHLOROQUINE [Suspect]
     Active Substance: CHLOROQUINE
     Indication: COVID-19 pneumonia
     Dosage: 250 MG, BID
     Route: 065
     Dates: start: 20200422, end: 20200427
  7. LOPINAVIR\RITONAVIR [Suspect]
     Active Substance: LOPINAVIR\RITONAVIR
     Indication: COVID-19
     Dosage: 500 MG, BID
     Route: 065
     Dates: start: 20200421, end: 20200428
  8. LOPINAVIR\RITONAVIR [Suspect]
     Active Substance: LOPINAVIR\RITONAVIR
     Indication: COVID-19 pneumonia
  9. METHYLPREDNISOLONE [Concomitant]
     Active Substance: METHYLPREDNISOLONE
     Indication: Product used for unknown indication
     Dosage: UNK, QD, FOR 3 CONSECUTIVE DAYS
     Route: 065
     Dates: start: 20200424, end: 20200426
  10. THYROXINE [Concomitant]
     Active Substance: LEVOTHYROXINE
     Indication: Hypothyroidism
     Dosage: UNK, UNKNOWN
     Route: 065

REACTIONS (3)
  - Interleukin level increased [Unknown]
  - Intentional product use issue [Unknown]
  - Off label use [Unknown]
